FAERS Safety Report 23542569 (Version 1)
Quarter: 2024Q1

REPORT INFORMATION
  Report Type: Spontaneous
  Country: DE (occurrence: DE)
  Receive Date: 20240220
  Receipt Date: 20240220
  Transmission Date: 20240410
  Serious: Yes (Other)
  Sender: FDA-Public Use
  Company Number: DE-TEVA-VS-3159595

PATIENT
  Age: 19 Year
  Sex: Female

DRUGS (1)
  1. ARIPIPRAZOLE [Suspect]
     Active Substance: ARIPIPRAZOLE
     Dosage: INTERIM MAXIMUM DOSE: 20MG
     Route: 048

REACTIONS (2)
  - Oculogyric crisis [Unknown]
  - Diplopia [Unknown]

NARRATIVE: CASE EVENT DATE: 20231201
